FAERS Safety Report 8990675 (Version 1)
Quarter: 2012Q4

REPORT INFORMATION
  Report Type: 
  Country: ES (occurrence: ES)
  Receive Date: 20121228
  Receipt Date: 20121228
  Transmission Date: 20130627
  Serious: Yes (Hospitalization, Disabling, Other)
  Sender: FDA-Public Use
  Company Number: ES-JNJFOC-20121203965

PATIENT
  Age: 23 Year
  Sex: Female
  Weight: 53 kg

DRUGS (2)
  1. EVRA [Suspect]
     Indication: CONTRACEPTION
     Route: 062
     Dates: start: 20041015, end: 20050105
  2. IBUPROFEN [Concomitant]
     Indication: DYSMENORRHOEA
     Route: 048

REACTIONS (7)
  - Deep vein thrombosis [Recovered/Resolved with Sequelae]
  - Physical disability [Unknown]
  - Lymphoedema [Recovered/Resolved with Sequelae]
  - Embolism venous [Unknown]
  - Hypercoagulation [Unknown]
  - Venous insufficiency [Unknown]
  - Weight increased [Not Recovered/Not Resolved]
